FAERS Safety Report 5907785-3 (Version None)
Quarter: 2008Q3

REPORT INFORMATION
  Report Type: 
  Country: None (occurrence: None)
  Receive Date: 20080929
  Receipt Date: 20080912
  Transmission Date: 20090109
  Serious: Yes (Congenital Anomaly)
  Sender: FDA-Public Use
  Company Number: 8037373

PATIENT

DRUGS (1)
  1. METHYLPHENIDATE HCL [Suspect]
     Dosage: TRP
     Route: 064

REACTIONS (3)
  - CARDIAC DISORDER [None]
  - CONGENITAL ANOMALY [None]
  - MATERNAL DRUGS AFFECTING FOETUS [None]
